FAERS Safety Report 19021200 (Version 3)
Quarter: 2021Q2

REPORT INFORMATION
  Report Type: Spontaneous
  Country: JP (occurrence: JP)
  Receive Date: 20210317
  Receipt Date: 20210518
  Transmission Date: 20210717
  Serious: Yes (Life-Threatening, Hospitalization)
  Sender: FDA-Public Use
  Company Number: JP-JNJFOC-20210328323

PATIENT
  Age: 67 Year
  Sex: Male

DRUGS (2)
  1. ERLEADA [Suspect]
     Active Substance: APALUTAMIDE
     Indication: HORMONE-REFRACTORY PROSTATE CANCER
     Route: 048
     Dates: start: 20200306
  2. ILUAMIX [Concomitant]
     Dosage: DOSE UNKNOWN
     Route: 048

REACTIONS (1)
  - Aortic dissection [Recovered/Resolved]

NARRATIVE: CASE EVENT DATE: 20210119
